FAERS Safety Report 5730841-X (Version None)
Quarter: 2008Q2

REPORT INFORMATION
  Report Type: 
  Country: None (occurrence: None)
  Receive Date: 20080507
  Receipt Date: 20080430
  Transmission Date: 20081010
  Serious: Yes (Other)
  Sender: FDA-Public Use
  Company Number: US-ASTRAZENECA-2008UW04020

PATIENT
  Age: 66 Year
  Sex: Female
  Weight: 74.8 kg

DRUGS (7)
  1. ARIMIDEX [Suspect]
     Indication: BREAST CANCER
     Route: 048
     Dates: start: 20060101, end: 20080101
  2. METFORMIN HCL [Concomitant]
  3. FLUOXETINE [Concomitant]
  4. LIPITOR [Concomitant]
  5. OMEPRAZOLE [Concomitant]
  6. TRICOR [Concomitant]
  7. ASPIRIN [Concomitant]

REACTIONS (3)
  - DISEASE PROGRESSION [None]
  - DYSPNOEA [None]
  - MALIGNANT PLEURAL EFFUSION [None]
